FAERS Safety Report 7048953-X (Version None)
Quarter: 2010Q4

REPORT INFORMATION
  Report Type: 
  Country: None (occurrence: None)
  Receive Date: 20101012
  Receipt Date: 20100929
  Transmission Date: 20110411
  Serious: Yes (Hospitalization)
  Sender: FDA-Public Use
  Company Number: 2010MA003140

PATIENT
  Age: 81 Year
  Sex: Male

DRUGS (3)
  1. BICALUTAMIDE [Suspect]
     Indication: ADENOCARCINOMA
  2. CON MEDS [Concomitant]
  3. PREV MEDS [Concomitant]

REACTIONS (1)
  - CARCINOID TUMOUR [None]
